FAERS Safety Report 5300064-7 (Version None)
Quarter: 2007Q2

REPORT INFORMATION
  Report Type: 
  Country: None (occurrence: None)
  Receive Date: 20070410
  Receipt Date: 20070330
  Transmission Date: 20071010
  Serious: Yes (Hospitalization)
  Sender: FDA-Public Use
  Company Number: CHNY2007GB01464

PATIENT
  Age: 85 Year
  Sex: Female

DRUGS (4)
  1. HYOSCINE HYDROBROMIDE (NCH) (HYOSCINE HYDROBROMIDE) TRANS-THERAPEUTIC- [Suspect]
     Indication: SECRETION DISCHARGE
     Dosage: 1 MG, Q72H, TRANSDERMAL
     Route: 062
     Dates: start: 20070303, end: 20070303
  2. BENDROFLUAZIDE (BENDROFLUMETHIAZIDE) [Concomitant]
  3. CALCICHEW (CALCIUM CARBONATE) [Concomitant]
  4. CO-CARELDOPA (CARBIDOPA, LEVODOPA) [Concomitant]

REACTIONS (3)
  - CONFUSIONAL STATE [None]
  - COORDINATION ABNORMAL [None]
  - DYSARTHRIA [None]
